FAERS Safety Report 5023825-0 (Version None)
Quarter: 2006Q2

REPORT INFORMATION
  Report Type: 
  Country: None (occurrence: None)
  Receive Date: 20060606
  Receipt Date: 20060529
  Transmission Date: 20061013
  Serious: Yes (Hospitalization)
  Sender: FDA-Public Use
  Company Number: 2006BH010463

PATIENT
  Sex: Male

DRUGS (1)
  1. DIANEAL [Suspect]
     Dosage: IP
     Route: 033

REACTIONS (5)
  - CATHETER SITE INFECTION [None]
  - DEHYDRATION [None]
  - GASTROENTERITIS [None]
  - PERITONITIS [None]
  - RASH PUSTULAR [None]
